FAERS Safety Report 14152240 (Version 1)
Quarter: 2017Q4

REPORT INFORMATION
  Report Type: Spontaneous
  Country: CA (occurrence: CA)
  Receive Date: 20171102
  Receipt Date: 20171102
  Transmission Date: 20180321
  Serious: Yes (Other)
  Sender: FDA-Public Use
  Company Number: CA-ASTRAZENECA-2017SF10014

PATIENT
  Sex: Male

DRUGS (5)
  1. ANASTROZOLE. [Suspect]
     Active Substance: ANASTROZOLE
     Route: 048
     Dates: start: 201507, end: 201511
  2. LHRH AGONIST [Concomitant]
     Active Substance: UNSPECIFIED INGREDIENT
     Dates: start: 201512, end: 201604
  3. CLODRONATE DISODIUM [Concomitant]
     Active Substance: CLODRONATE DISODIUM
     Dates: start: 201507, end: 201511
  4. TAMOXIFEN CITRATE. [Suspect]
     Active Substance: TAMOXIFEN CITRATE
     Route: 048
     Dates: start: 201007, end: 201507
  5. BICALUTAMIDE. [Suspect]
     Active Substance: BICALUTAMIDE
     Route: 048
     Dates: start: 201512, end: 201604

REACTIONS (3)
  - Metastases to bone [Unknown]
  - Metastases to the mediastinum [Unknown]
  - Malignant neoplasm progression [Unknown]
